FAERS Safety Report 7532773-3 (Version None)
Quarter: 2011Q2

REPORT INFORMATION
  Report Type: 
  Country: None (occurrence: None)
  Receive Date: 20110608
  Receipt Date: 20110530
  Transmission Date: 20111010
  Serious: Yes (Hospitalization)
  Sender: FDA-Public Use
  Company Number: B0708994A

PATIENT
  Sex: Male
  Weight: 71 kg

DRUGS (8)
  1. ALKERAN [Suspect]
     Indication: STEM CELL TRANSPLANT
     Dosage: 130MGM2 PER DAY
     Route: 042
     Dates: start: 20040226, end: 20040226
  2. LANSOPRAZOLE [Concomitant]
     Dosage: 15MG PER DAY
     Route: 048
     Dates: start: 20040220, end: 20040413
  3. ETOPOSIDE [Concomitant]
     Indication: STEM CELL TRANSPLANT
     Dosage: 800MG PER DAY
     Route: 042
     Dates: start: 20040223, end: 20040225
  4. DECADRON [Concomitant]
     Indication: STEM CELL TRANSPLANT
     Dosage: 40MG PER DAY
     Dates: start: 20040223, end: 20040226
  5. CYCLOPHOSPHAMIDE [Concomitant]
     Indication: STEM CELL TRANSPLANT
     Dosage: 3600MG PER DAY
     Route: 042
     Dates: start: 20040223, end: 20040224
  6. OZEX [Concomitant]
     Dosage: 450MG PER DAY
     Route: 048
     Dates: start: 20040223, end: 20040316
  7. KYTRIL [Concomitant]
     Indication: STEM CELL TRANSPLANT
     Dosage: 2IUAX PER DAY
     Route: 042
     Dates: start: 20040223, end: 20040226
  8. DIFLUCAN [Concomitant]
     Dosage: 100MG PER DAY
     Route: 048
     Dates: start: 20040223, end: 20040229

REACTIONS (3)
  - SEPSIS [None]
  - C-REACTIVE PROTEIN INCREASED [None]
  - PYREXIA [None]
